FAERS Safety Report 4536912-8 (Version None)
Quarter: 2004Q4

REPORT INFORMATION
  Report Type: 
  Country: None (occurrence: None)
  Receive Date: 20041223
  Receipt Date: 20041215
  Transmission Date: 20050328
  Serious: Yes (Other)
  Sender: FDA-Public Use
  Company Number: 200404701

PATIENT
  Age: 69 Year
  Sex: Male

DRUGS (7)
  1. CIMETIDINE [Suspect]
     Route: 065
     Dates: start: 20040816, end: 20040818
  2. INTRON A [Concomitant]
     Dates: start: 20040809, end: 20040816
  3. CYANOCOBALAMIN [Concomitant]
  4. MARZULENE S [Concomitant]
  5. NEUROTROPIN [Concomitant]
  6. LACTOMICIN [Concomitant]
  7. PRIMPERAN [Concomitant]

REACTIONS (1)
  - RENAL FAILURE ACUTE [None]
